FAERS Safety Report 8169049-X (Version None)
Quarter: 2012Q1

REPORT INFORMATION
  Report Type: 
  Country: None (occurrence: None)
  Receive Date: 20120227
  Receipt Date: 20120222
  Transmission Date: 20120608
  Serious: No
  Sender: FDA-Public Use
  Company Number: US-PFIZER INC-2012048160

PATIENT
  Sex: Female

DRUGS (9)
  1. VIOXX [Suspect]
     Dosage: UNK
  2. ZOCOR [Suspect]
     Dosage: UNK
  3. NITROFURANTOIN [Suspect]
     Dosage: UNK
  4. CIPROFLOXACIN [Suspect]
     Dosage: UNK
  5. DOXYCYCLINE [Suspect]
     Dosage: UNK
  6. LEVAQUIN [Suspect]
     Dosage: UNK
  7. DEMEROL [Suspect]
     Dosage: UNK
  8. LIPITOR [Suspect]
     Dosage: UNK
  9. MACROBID [Suspect]
     Dosage: UNK

REACTIONS (1)
  - DRUG INTOLERANCE [None]
